FAERS Safety Report 7923919-3 (Version None)
Quarter: 2011Q4

REPORT INFORMATION
  Report Type: 
  Country: None (occurrence: None)
  Receive Date: 20111117
  Receipt Date: 20110210
  Transmission Date: 20120403
  Serious: No
  Sender: FDA-Public Use
  Company Number: US-AMGEN-USASP2011008150

PATIENT
  Sex: Male

DRUGS (2)
  1. ENBREL [Suspect]
     Indication: RHEUMATOID ARTHRITIS
     Dosage: 25 MG, 2 TIMES/WK
     Dates: start: 20000101
  2. SULFASALAZINE [Concomitant]
     Dates: start: 20050101

REACTIONS (3)
  - COLITIS ULCERATIVE [None]
  - DIARRHOEA [None]
  - ANAEMIA [None]
